FAERS Safety Report 9354176 (Version 2)
Quarter: 2013Q3

REPORT INFORMATION
  Report Type: Spontaneous
  Country: US (occurrence: US)
  Receive Date: 20130618
  Receipt Date: 20130808
  Transmission Date: 20140515
  Serious: Yes (Other)
  Sender: FDA-Public Use
  Company Number: US-BRISTOL-MYERS SQUIBB COMPANY-18994491

PATIENT
  Age: 80 Year
  Sex: Female
  Weight: 42.18 kg

DRUGS (1)
  1. ORENCIA [Suspect]
     Indication: RHEUMATOID ARTHRITIS
     Dosage: LAST INF:05JUN13
     Route: 042

REACTIONS (6)
  - Dyspnoea [Unknown]
  - Vocal cord paralysis [Unknown]
  - Carotid artery disease [Unknown]
  - Pulmonary mass [Unknown]
  - Nausea [Unknown]
  - Joint injury [Unknown]
